FAERS Safety Report 5235606-3 (Version None)
Quarter: 2007Q1

REPORT INFORMATION
  Report Type: 
  Country: None (occurrence: None)
  Receive Date: 20070212
  Receipt Date: 20070202
  Transmission Date: 20070707
  Serious: Yes (Disabling)
  Sender: FDA-Public Use
  Company Number: PHBS2007IT02298

PATIENT
  Age: 61 Year
  Sex: Female

DRUGS (2)
  1. ZOMETA [Suspect]
     Indication: BREAST CANCER STAGE IV
     Dosage: 4 MG, ONCE/SINGLE
     Route: 042
     Dates: start: 20061218, end: 20061218
  2. AROMASIN [Concomitant]
     Route: 048

REACTIONS (3)
  - OSTEONECROSIS [None]
  - WOUND DEBRIDEMENT [None]
  - X-RAY DENTAL [None]
